FAERS Safety Report 7482979-7 (Version None)
Quarter: 2011Q2

REPORT INFORMATION
  Report Type: 
  Country: None (occurrence: None)
  Receive Date: 20110516
  Receipt Date: 20110504
  Transmission Date: 20111010
  Serious: Yes (Other)
  Sender: FDA-Public Use
  Company Number: US-SANOFI-AVENTIS-2011SA022798

PATIENT
  Age: 78 Year
  Sex: Female

DRUGS (2)
  1. LANTUS [Suspect]
     Indication: TYPE 2 DIABETES MELLITUS
     Dosage: 50 U IN AM AND 10 U IN PM
     Route: 058
  2. INSULIN [Suspect]
     Indication: TYPE 2 DIABETES MELLITUS

REACTIONS (2)
  - VISUAL IMPAIRMENT [None]
  - MACULAR DEGENERATION [None]
